FAERS Safety Report 10708208 (Version 1)
Quarter: 2015Q1

REPORT INFORMATION
  Report Type: Spontaneous
  Country: US (occurrence: US)
  Receive Date: 20150113
  Receipt Date: 20150113
  Transmission Date: 20150721
  Serious: Yes (Death)
  Sender: FDA-Public Use
  Company Number: US-BAYER-2015-003798

PATIENT
  Age: 26 Year
  Sex: Male

DRUGS (9)
  1. QUININE [Suspect]
     Active Substance: QUININE
  2. HEROIN [Suspect]
     Active Substance: DIACETYLMORPHINE
  3. DIPHENHYDRAMINE HYDROCHLORIDE. [Suspect]
     Active Substance: DIPHENHYDRAMINE HYDROCHLORIDE
  4. COCAINE [Suspect]
     Active Substance: COCAINE
  5. CLONAZEPAM. [Suspect]
     Active Substance: CLONAZEPAM
  6. METHADONE [Suspect]
     Active Substance: METHADONE HYDROCHLORIDE
  7. ALPRAZOLAM. [Suspect]
     Active Substance: ALPRAZOLAM
  8. CHLORPHENIRAMINE [Suspect]
     Active Substance: CHLORPHENIRAMINE
  9. CODEINE [Suspect]
     Active Substance: CODEINE

REACTIONS (1)
  - Drug abuse [Fatal]
